FAERS Safety Report 8066914-9 (Version None)
Quarter: 2012Q1

REPORT INFORMATION
  Report Type: 
  Country: None (occurrence: None)
  Receive Date: 20120124
  Receipt Date: 20120119
  Transmission Date: 20120608
  Serious: Yes (Other)
  Sender: FDA-Public Use
  Company Number: PHHY2011SK110801

PATIENT
  Sex: Male

DRUGS (4)
  1. INSULIN [Concomitant]
  2. METHYLPREDNISOLONE [Suspect]
     Dosage: 20 MG, QD
  3. CORTICOSTEROID NOS [Concomitant]
  4. METHYLPREDNISOLONE [Suspect]
     Dosage: 500 MG, TID; THREE DAYS AFTER TRANSPLANT

REACTIONS (6)
  - CHONDROMALACIA [None]
  - ARTHRALGIA [None]
  - LIGAMENT RUPTURE [None]
  - CIRCULATORY COLLAPSE [None]
  - PATELLOFEMORAL PAIN SYNDROME [None]
  - OSTEONECROSIS [None]
